FAERS Safety Report 10206016 (Version 1)
Quarter: 2014Q2

REPORT INFORMATION
  Report Type: Spontaneous
  Country: GB (occurrence: GB)
  Receive Date: 20140530
  Receipt Date: 20140530
  Transmission Date: 20141212
  Serious: Yes (Other)
  Sender: FDA-Public Use
  Company Number: GB-009507513-1405GBR015290

PATIENT
  Age: 67 Year
  Sex: Male
  Weight: 83 kg

DRUGS (6)
  1. ZOCOR TABLETS 5MG [Suspect]
  2. ROSUVASTATIN CALCIUM [Suspect]
     Dates: start: 20140318
  3. ATORVASTATIN [Suspect]
  4. PRAVASTATIN SODIUM [Suspect]
  5. ALLOPURINOL [Concomitant]
     Dates: start: 20140124
  6. CLOPIDOGREL [Concomitant]
     Dates: start: 20140124

REACTIONS (2)
  - Back pain [Recovered/Resolved]
  - Myalgia [Recovered/Resolved]
